FAERS Safety Report 9204053 (Version 1)
Quarter: 2013Q1

REPORT INFORMATION
  Report Type: Spontaneous
  Country: US (occurrence: None)
  Receive Date: 20120709
  Receipt Date: 20120709
  Transmission Date: 20140127
  Serious: No
  Sender: FDA-Public Use
  Company Number: 2012HGS-003476

PATIENT
  Age: 45 Year
  Sex: Female
  Weight: 66.23 kg

DRUGS (7)
  1. BENLYSTA [Suspect]
     Dosage: 1 IN 1 M
     Route: 041
     Dates: start: 20120308
  2. AMLODIPINE (AMLODIPINE) (AMLODIPINE) [Concomitant]
  3. ASPIRIN (ACETYLSALICYLIC ACID) (ACETYLSALICYLIC ACID) [Concomitant]
  4. PLAQUENIL (HYDROXYCHLOROQUINE SULFATE) (HYDROXYCHLOROQUINE SULFATE) [Concomitant]
  5. ZOCOR (SIMVASTATIN) (SIMVASTATIN) [Concomitant]
  6. TRAMADOL (TRAMADOL) (TRAMADOL) [Concomitant]
  7. TOPAMAX (TOPIRAMATE) (TOPIRAMATE) [Concomitant]

REACTIONS (2)
  - Migraine [None]
  - Diarrhoea [None]
